FAERS Safety Report 11883390 (Version 1)
Quarter: 2015Q4

REPORT INFORMATION
  Report Type: Spontaneous
  Country: JP (occurrence: JP)
  Receive Date: 20151231
  Receipt Date: 20151231
  Transmission Date: 20160305
  Serious: Yes (Other)
  Sender: FDA-Public Use
  Company Number: JP-PFIZER INC-2015470085

PATIENT

DRUGS (1)
  1. INLYTA [Suspect]
     Active Substance: AXITINIB
     Dosage: UNK
     Route: 048
     Dates: start: 2013

REACTIONS (2)
  - Renal impairment [Unknown]
  - Proteinuria [Unknown]

NARRATIVE: CASE EVENT DATE: 2013
